FAERS Safety Report 25363549 (Version 1)
Quarter: 2025Q2

REPORT INFORMATION
  Report Type: Spontaneous
  Country: US (occurrence: None)
  Receive Date: 20250527
  Receipt Date: 20250527
  Transmission Date: 20250716
  Serious: No
  Sender: FDA-CTU
  Company Number: None

PATIENT

DRUGS (1)
  1. MAVENCLAD [Suspect]
     Active Substance: CLADRIBINE

REACTIONS (11)
  - Myelosuppression [None]
  - Weight decreased [None]
  - Balance disorder [None]
  - Gait inability [None]
  - Aphasia [None]
  - Cognitive disorder [None]
  - Initial insomnia [None]
  - Decreased appetite [None]
  - Restlessness [None]
  - Respiratory disorder [None]
  - Asthma [None]
